FAERS Safety Report 26190346 (Version 1)
Quarter: 2025Q4

REPORT INFORMATION
  Report Type: Spontaneous
  Country: KR (occurrence: KR)
  Receive Date: 20251223
  Receipt Date: 20251223
  Transmission Date: 20260118
  Serious: Yes (Other)
  Sender: MERCK SHARP & DOHME LLC
  Company Number: KR-009507513-2362292

PATIENT
  Age: 66 Year
  Sex: Female
  Weight: 54.8 kg

DRUGS (4)
  1. PEMBROLIZUMAB [Suspect]
     Active Substance: PEMBROLIZUMAB
     Indication: Cervix carcinoma
     Dosage: TIME INTERVAL: 0.14285714 WEEKS
     Dates: start: 20241002, end: 20241002
  2. PACLITAXEL [Suspect]
     Active Substance: PACLITAXEL
     Indication: Cervix carcinoma
     Dosage: TIME INTERVAL: 0.14285714 WEEKS
     Dates: start: 20241002, end: 20241002
  3. BEVACIZUMAB [Suspect]
     Active Substance: BEVACIZUMAB
     Indication: Cervix carcinoma
     Dosage: TIME INTERVAL: 0.14285714 WEEKS
     Dates: start: 20241002, end: 20241002
  4. CARBOPLATIN [Suspect]
     Active Substance: CARBOPLATIN
     Indication: Cervix carcinoma
     Dosage: TIME INTERVAL: 0.14285714 WEEKS
     Dates: start: 20241002, end: 20241002

REACTIONS (1)
  - Neutropenia [Recovered/Resolved]

NARRATIVE: CASE EVENT DATE: 20241016
